FAERS Safety Report 7832384-6 (Version None)
Quarter: 2011Q4

REPORT INFORMATION
  Report Type: 
  Country: None (occurrence: None)
  Receive Date: 20111022
  Receipt Date: 20111011
  Transmission Date: 20120403
  Serious: Yes (Other)
  Sender: FDA-Public Use
  Company Number: US-BAYER-2011-083358

PATIENT
  Age: 24 Year
  Sex: Female
  Weight: 62.585 kg

DRUGS (2)
  1. IBUPROFEN [Concomitant]
  2. YASMIN [Suspect]
     Dosage: UNK
     Dates: start: 20030613, end: 20060912

REACTIONS (7)
  - PAIN [None]
  - GALLBLADDER DISORDER [None]
  - INJURY [None]
  - GALLBLADDER ENLARGEMENT [None]
  - CHOLELITHIASIS [None]
  - ABDOMINAL PAIN UPPER [None]
  - ABDOMINAL PAIN [None]
